FAERS Safety Report 12308068 (Version 1)
Quarter: 2016Q2

REPORT INFORMATION
  Report Type: Report from Study
  Country: BR (occurrence: BR)
  Receive Date: 20160426
  Receipt Date: 20160426
  Transmission Date: 20160815
  Serious: Yes (Hospitalization, Other)
  Sender: FDA-Public Use
  Company Number: BR-ABBVIE-16K-020-1610306-00

PATIENT
  Age: 66 Year
  Sex: Female
  Weight: 78 kg

DRUGS (9)
  1. FOLIC ACID. [Concomitant]
     Active Substance: FOLIC ACID
     Indication: LIVER DISORDER
     Dates: start: 2001
  2. PREDNISONE. [Concomitant]
     Active Substance: PREDNISONE
     Indication: ARTHRITIS
     Route: 048
     Dates: start: 2013
  3. NAPROXEN. [Concomitant]
     Active Substance: NAPROXEN
     Indication: RHEUMATOID ARTHRITIS
     Route: 048
  4. ACETYLSALICYLIC ACID [Concomitant]
     Active Substance: ASPIRIN
     Indication: ANTICOAGULANT THERAPY
     Route: 048
     Dates: start: 2001
  5. HUMIRA [Suspect]
     Active Substance: ADALIMUMAB
     Indication: RHEUMATOID ARTHRITIS
     Route: 058
     Dates: start: 20140101
  6. TANDERALGIN [Concomitant]
     Indication: INFLAMMATION
     Dates: start: 201601
  7. METHOTREXATE [Concomitant]
     Active Substance: METHOTREXATE
     Indication: RHEUMATOID ARTHRITIS
     Route: 058
     Dates: start: 2001
  8. ATENOLOL. [Concomitant]
     Active Substance: ATENOLOL
     Indication: ARRHYTHMIA
     Route: 048
     Dates: start: 2014
  9. DIPYRONE [Concomitant]
     Active Substance: DIPYRONE
     Indication: PAIN
     Dosage: EVERY 6 HOURS, UPON INFLAMMATION
     Route: 048
     Dates: start: 201512

REACTIONS (15)
  - Nausea [Recovering/Resolving]
  - Hepatic steatosis [Unknown]
  - Muscular weakness [Recovering/Resolving]
  - Inflammation [Not Recovered/Not Resolved]
  - Arthritis [Unknown]
  - Vein rupture [Recovering/Resolving]
  - Dizziness postural [Recovering/Resolving]
  - Grip strength decreased [Unknown]
  - Peripheral swelling [Recovering/Resolving]
  - Paraesthesia [Recovering/Resolving]
  - Pain in extremity [Recovering/Resolving]
  - Epistaxis [Recovering/Resolving]
  - Finger deformity [Unknown]
  - Muscular weakness [Recovering/Resolving]
  - Spinal osteoarthritis [Unknown]

NARRATIVE: CASE EVENT DATE: 2014
